FAERS Safety Report 18531024 (Version 1)
Quarter: 2020Q4

REPORT INFORMATION
  Report Type: Spontaneous
  Country: US (occurrence: US)
  Receive Date: 20201122
  Receipt Date: 20201122
  Transmission Date: 20210114
  Serious: Yes (Other)
  Sender: FDA-Public Use
  Company Number: US-EMCURE PHARMACEUTICALS LTD-2020-EPL-001906

PATIENT
  Age: 74 Year
  Sex: Female

DRUGS (12)
  1. FOSCARNET [Concomitant]
     Active Substance: FOSCARNET
     Indication: RETINITIS VIRAL
     Route: 031
  2. PREDNISONE. [Concomitant]
     Active Substance: PREDNISONE
     Indication: RETINITIS VIRAL
     Dosage: 60 MILLIGRAM
     Route: 048
  3. SULFAMETHOXAZOLE, TRIMETHOPRIM [Suspect]
     Active Substance: SULFAMETHOXAZOLE\TRIMETHOPRIM
     Indication: EYE INFECTION TOXOPLASMAL
  4. PREDNISONE. [Concomitant]
     Active Substance: PREDNISONE
     Dosage: 10 MILLIGRAM DAILY
     Route: 048
  5. PREDNISONE. [Concomitant]
     Active Substance: PREDNISONE
     Dosage: TAPERED OVER TO 10 MG/DAY OVER A 1 WEEK PERIOD
     Route: 048
  6. TRIAMCINOLONE 40 MG/ML [Concomitant]
     Dosage: 1 MILLILITER, TOTAL
  7. IMMUNOGLOBULINS [Concomitant]
     Indication: DERMATOMYOSITIS
     Route: 042
  8. GANCICLOVIR. [Concomitant]
     Active Substance: GANCICLOVIR
     Indication: RETINITIS VIRAL
     Route: 031
  9. AZATHIOPRINE. [Concomitant]
     Active Substance: AZATHIOPRINE
     Indication: DERMATOMYOSITIS
  10. VALACICLOVIR [Concomitant]
     Active Substance: VALACYCLOVIR HYDROCHLORIDE
     Indication: RETINITIS VIRAL
     Dosage: 1 GRAM PER 8 HOUR
  11. CLINDAMYCIN. [Concomitant]
     Active Substance: CLINDAMYCIN
     Indication: EYE INFECTION TOXOPLASMAL
     Route: 031
  12. PREDNISOLONE ACETATE 1 % [Concomitant]
     Active Substance: PREDNISOLONE ACETATE
     Indication: IRITIS
     Route: 061

REACTIONS (1)
  - Chronic kidney disease [Unknown]
